FAERS Safety Report 9118409 (Version 4)
Quarter: 2013Q3

REPORT INFORMATION
  Report Type: Spontaneous
  Country: CA (occurrence: None)
  Receive Date: 20130128
  Receipt Date: 20130826
  Transmission Date: 20140515
  Serious: Yes (Other)
  Sender: FDA-Public Use
  Company Number: 2012323476

PATIENT
  Age: 49 Year
  Sex: Female
  Weight: 104.3 kg

DRUGS (11)
  1. FRAGMIN [Suspect]
     Indication: PROPHYLAXIS
  2. AMLODIPINE (AMLODIPINE) [Concomitant]
  3. LANTUS (INSULIN GLARGINE) [Concomitant]
  4. PAROXETINE (PAROXETINE) [Concomitant]
  5. GLICLAZIDE (GLICLAZIDE) [Concomitant]
  6. WARFARIN (WARFARIN) [Concomitant]
  7. NOVORAPID (INSULIN ASPART) [Concomitant]
  8. FUROSEMIDE (FUROSEMIDE) [Concomitant]
  9. TECTA (PANTOPRAZOLE) [Concomitant]
  10. ROSUVASTATIN (ROSUVASTATIN) [Concomitant]
  11. INSULIN (INSULIN) [Concomitant]

REACTIONS (7)
  - Injection site injury [None]
  - Needle issue [None]
  - Injection site haemorrhage [None]
  - Abdominal abscess [None]
  - Foreign body [None]
  - Product quality issue [None]
  - Wrong technique in drug usage process [None]
